FAERS Safety Report 20301894 (Version 3)
Quarter: 2022Q2

REPORT INFORMATION
  Report Type: Report from Study
  Country: US (occurrence: US)
  Receive Date: 20220105
  Receipt Date: 20220405
  Transmission Date: 20220721
  Serious: Yes (Death)
  Sender: FDA-Public Use
  Company Number: US-ABBVIE-22K-163-4221860-00

PATIENT
  Age: 79 Year
  Sex: Female
  Weight: 67 kg

DRUGS (26)
  1. VENCLEXTA [Suspect]
     Active Substance: VENETOCLAX
     Indication: Chronic lymphocytic leukaemia
     Route: 048
     Dates: start: 20200615, end: 20211202
  2. SODIUM CHLORIDE [Concomitant]
     Active Substance: SODIUM CHLORIDE
     Indication: Product used for unknown indication
     Dosage: 0.9NACI W/KCL 20 MEQ/L, 1,000 ML?NSKCL20 68.667 ML
     Dates: start: 20211201, end: 20211201
  3. SODIUM CHLORIDE [Concomitant]
     Active Substance: SODIUM CHLORIDE
     Dosage: 0.9NACI W/KCL 20 MEQ/L, 1,000 ML?NSKOI20 1000 ML
     Dates: start: 20211201
  4. SODIUM CHLORIDE [Concomitant]
     Active Substance: SODIUM CHLORIDE
     Dosage: 0.9NACI W/KCL 20 MEQ/L, 1,000 ML?NSKCL20 125 ,ML
     Dates: start: 20211202, end: 20211202
  5. SODIUM CHLORIDE [Concomitant]
     Active Substance: SODIUM CHLORIDE
     Dosage: 0.9NACI W/KCL 20 MEQ/L, 1,000 ML?NEIKCL20 125 ML
     Dates: start: 20211202, end: 20211202
  6. CALCIUM [Concomitant]
     Active Substance: CALCIUM
     Indication: Product used for unknown indication
     Dosage: OSCAD500TSTD 1 TAB ?CALCIUM-VITAMIN D 500 MG-5 MCG (200 INTL UNITS) ORAL TABLET
     Route: 048
     Dates: start: 20211202
  7. VITAMIN D [Concomitant]
     Active Substance: VITAMIN D NOS
     Indication: Product used for unknown indication
     Dosage: CALCIUM-VITAMIN D 500 MG-5 MCG (200 INTL UNITS) ORAL TABLET?OSCAD500TSTD 1 TAB
     Route: 048
     Dates: start: 20211202
  8. WARFARIN [Concomitant]
     Active Substance: WARFARIN
     Indication: Product used for unknown indication
     Route: 048
  9. SENNA [Concomitant]
     Active Substance: SENNA LEAF\SENNOSIDES\SENNOSIDES A AND B
     Indication: Product used for unknown indication
     Route: 048
  10. ALLOPURINOL [Concomitant]
     Active Substance: ALLOPURINOL
     Indication: Product used for unknown indication
     Dosage: ALLO300T 300 MG 1 TAB
     Route: 048
     Dates: start: 20211202
  11. AMLODIPINE [Concomitant]
     Active Substance: AMLODIPINE BESYLATE
     Indication: Product used for unknown indication
  12. CARVEDILOL [Concomitant]
     Active Substance: CARVEDILOL
     Indication: Product used for unknown indication
     Dosage: CARV2ST 25 MG 1 TAB
     Route: 048
     Dates: start: 20211202
  13. GLIPIZIDE [Concomitant]
     Active Substance: GLIPIZIDE
     Indication: Product used for unknown indication
     Route: 048
  14. LISINOPRIL [Concomitant]
     Active Substance: LISINOPRIL
     Indication: Product used for unknown indication
     Dosage: LISI20TSTD 40 MG 2 TAB
     Route: 048
     Dates: start: 20211202
  15. METFORMIN [Concomitant]
     Active Substance: METFORMIN HYDROCHLORIDE
     Indication: Product used for unknown indication
     Route: 048
  16. ANASTROZOLE [Concomitant]
     Active Substance: ANASTROZOLE
     Indication: Product used for unknown indication
     Dosage: C1ANAS1T 1 MG
     Route: 048
     Dates: start: 20211202
  17. MORPHINE [Concomitant]
     Active Substance: MORPHINE
     Indication: Product used for unknown indication
     Dates: start: 20211202
  18. TYLENOL [Concomitant]
     Active Substance: ACETAMINOPHEN
     Indication: Product used for unknown indication
     Dates: start: 20211202
  19. ZOFRAN [Concomitant]
     Active Substance: ONDANSETRON HYDROCHLORIDE
     Indication: Nausea
     Dosage: ONDA2I2PFSDV 4 MG 2 ML
     Route: 042
     Dates: start: 20211202
  20. ZOFRAN [Concomitant]
     Active Substance: ONDANSETRON HYDROCHLORIDE
     Indication: Vomiting
  21. REGLAN [Concomitant]
     Active Substance: METOCLOPRAMIDE HYDROCHLORIDE
     Indication: Nausea
     Dosage: MET05I2SDV 10 MG 2 ML
     Route: 042
     Dates: start: 20211202
  22. PHENERGAN [Concomitant]
     Active Substance: PROMETHAZINE HYDROCHLORIDE
     Indication: Nausea
     Dosage: NS5OPB 50 ML; PROM25I1SDV 12.5 MG 0,5 ML
     Route: 042
     Dates: start: 20211202
  23. PHENERGAN [Concomitant]
     Active Substance: PROMETHAZINE HYDROCHLORIDE
     Indication: Vomiting
  24. POTASSIUM CHLORIDE [Concomitant]
     Active Substance: POTASSIUM CHLORIDE
     Indication: Product used for unknown indication
     Dosage: PE1KCL20W5STD 20 M EG 50 ML
     Route: 042
     Dates: start: 20211202
  25. POTASSIUM CHLORIDE [Concomitant]
     Active Substance: POTASSIUM CHLORIDE
     Dosage: PE1KCL20W5STD 20 M EG 50 ML
     Route: 042
     Dates: start: 20211202
  26. LIDOCAINE [Concomitant]
     Active Substance: LIDOCAINE
     Indication: Product used for unknown indication
     Dosage: LDO4%TOP 1 PATCH
     Route: 062
     Dates: start: 20211202

REACTIONS (1)
  - Chronic lymphocytic leukaemia [Fatal]

NARRATIVE: CASE EVENT DATE: 20211216
